FAERS Safety Report 21413689 (Version 1)
Quarter: 2022Q4

REPORT INFORMATION
  Report Type: Spontaneous
  Country: JP (occurrence: JP)
  Receive Date: 20221006
  Receipt Date: 20221006
  Transmission Date: 20230112
  Serious: Yes (Other)
  Sender: FDA-Public Use
  Company Number: JP-SUN PHARMACEUTICAL INDUSTRIES LTD-2022RR-357429

PATIENT
  Age: 58 Year
  Sex: Female

DRUGS (14)
  1. FULVESTRANT [Suspect]
     Active Substance: FULVESTRANT
     Indication: Breast cancer metastatic
     Dosage: UNK
     Route: 065
  2. EXEMESTANE [Suspect]
     Active Substance: EXEMESTANE
     Indication: Breast cancer metastatic
     Dosage: UNK
     Route: 065
     Dates: start: 201203
  3. CAPECITABINE [Suspect]
     Active Substance: CAPECITABINE
     Indication: Breast cancer metastatic
     Dosage: UNK
     Dates: start: 201509
  4. ANASTROZOLE [Suspect]
     Active Substance: ANASTROZOLE
     Indication: Breast cancer
     Dosage: UNK
     Route: 065
     Dates: start: 201404
  5. DOCETAXEL [Suspect]
     Active Substance: DOCETAXEL
     Indication: Breast cancer
     Dosage: UNK, 3 CYCLES
     Route: 065
  6. PACLITAXEL [Suspect]
     Active Substance: PACLITAXEL
     Indication: Breast cancer metastatic
     Dosage: 90 MILLIGRAM/SQ. METER, Q4W (130 MG), DAY 1,8,15
     Route: 065
     Dates: end: 201909
  7. FLUOROURACIL [Concomitant]
     Active Substance: FLUOROURACIL
     Indication: Breast cancer
     Dosage: UNK
     Route: 065
  8. EPIRUBICIN [Concomitant]
     Active Substance: EPIRUBICIN
     Indication: Breast cancer
     Dosage: UNK
     Route: 065
  9. CYCLOPHOSPHAMIDE [Concomitant]
     Active Substance: CYCLOPHOSPHAMIDE
     Indication: Breast cancer
     Dosage: UNK, 3 CYCLES
     Route: 065
  10. TAMOXIFEN [Concomitant]
     Active Substance: TAMOXIFEN
     Indication: Breast cancer
     Dosage: UNK
     Route: 065
  11. TS-1 [Concomitant]
     Active Substance: GIMERACIL\OTERACIL\TEGAFUR
     Indication: Breast cancer metastatic
     Dosage: UNK
     Route: 065
     Dates: start: 201512
  12. BEVACIZUMAB [Concomitant]
     Active Substance: BEVACIZUMAB
     Indication: Breast cancer metastatic
     Dosage: 10 MILLIGRAM/KILOGRAM, Q4W (670 MG), DAY 1, 15
     Dates: end: 201909
  13. ERIBULIN [Concomitant]
     Active Substance: ERIBULIN
     Indication: Breast cancer metastatic
     Dosage: 1.8 MILLIGRAM, 1 DOSE/3 WEEKS, DAY 1, 8
     Route: 065
  14. TOREMIFENE [Concomitant]
     Active Substance: TOREMIFENE
     Indication: Breast cancer metastatic
     Dosage: UNK
     Route: 065
     Dates: start: 201606

REACTIONS (3)
  - Disease recurrence [Unknown]
  - Disease progression [Unknown]
  - General physical health deterioration [Unknown]
